FAERS Safety Report 5257932-4 (Version None)
Quarter: 2007Q1

REPORT INFORMATION
  Report Type: 
  Country: None (occurrence: None)
  Receive Date: 20070307
  Receipt Date: 20061025
  Transmission Date: 20070707
  Serious: No
  Sender: FDA-Public Use
  Company Number: US-GLAXOSMITHKLINE-A0624912A

PATIENT
  Age: 70 Year
  Sex: Female

DRUGS (10)
  1. REQUIP [Suspect]
     Indication: RESTLESS LEGS SYNDROME
     Dosage: 1MG THREE TIMES PER DAY
     Route: 048
     Dates: start: 20060901
  2. RILUTEK [Concomitant]
  3. LISINOPRIL [Concomitant]
  4. BONIVA [Concomitant]
  5. UNKNOWN MEDICATION [Concomitant]
  6. ASCORBIC ACID [Concomitant]
  7. CALCIUM [Concomitant]
  8. MAGNESIUM [Concomitant]
  9. ASPIRIN [Concomitant]
  10. ALEVE [Concomitant]

REACTIONS (1)
  - MUSCLE TWITCHING [None]
